FAERS Safety Report 21933059 (Version 2)
Quarter: 2023Q1

REPORT INFORMATION
  Report Type: Spontaneous
  Country: US (occurrence: US)
  Receive Date: 20230131
  Receipt Date: 20230329
  Transmission Date: 20230417
  Serious: Yes (Life-Threatening, Disabling)
  Sender: FDA-Public Use
  Company Number: US-AMERICAN REGENT INC-2023000246

PATIENT
  Age: 36 Year
  Sex: Female
  Weight: 89.796 kg

DRUGS (11)
  1. FERRIC CARBOXYMALTOSE [Suspect]
     Active Substance: FERRIC CARBOXYMALTOSE
     Indication: Iron deficiency anaemia
     Dosage: 750 MILLIGRAM IN 100 CC OF NS
     Route: 042
     Dates: start: 20200821, end: 20200821
  2. FERRIC CARBOXYMALTOSE [Suspect]
     Active Substance: FERRIC CARBOXYMALTOSE
     Dosage: 750 MILLIGRAM IN 100 CC OF NS
     Route: 042
     Dates: start: 20200904, end: 20200904
  3. FERRIC CARBOXYMALTOSE [Suspect]
     Active Substance: FERRIC CARBOXYMALTOSE
     Dosage: 750 MILLIGRAM IN 100 CC OF NS
     Route: 042
     Dates: start: 20201023, end: 20201023
  4. FERRIC CARBOXYMALTOSE [Suspect]
     Active Substance: FERRIC CARBOXYMALTOSE
     Dosage: 750 MILLIGRAM IN 100 CC OF NS
     Route: 042
     Dates: start: 20201104, end: 20201104
  5. DECADRON [Concomitant]
     Active Substance: DEXAMETHASONE
     Indication: Premedication
     Dosage: 12 MILLIGRAM
     Route: 042
     Dates: start: 20201104
  6. ELIQUIS [Concomitant]
     Active Substance: APIXABAN
     Indication: Anticoagulant therapy
     Dosage: 5 MILLIGRAM, BID
     Route: 048
  7. NORETHINDRONE [Concomitant]
     Active Substance: NORETHINDRONE
     Indication: Contraception
     Dosage: 0.35 MILLIGRAM, QD
     Route: 048
  8. ASCORBIC ACID [Concomitant]
     Active Substance: ASCORBIC ACID
     Indication: Supplementation therapy
     Dosage: 1000 MILLIGRAM, QD
     Route: 048
  9. EZFE [Concomitant]
     Indication: Iron deficiency anaemia
     Dosage: 200 MILLIGRAM, QD
     Route: 048
  10. OMEPRAZOLE [Concomitant]
     Active Substance: OMEPRAZOLE
     Indication: Product used for unknown indication
     Dosage: 40 MILLIGRAM, QD
     Route: 048
  11. TRIAMCINOLONE ACETONIDE [Concomitant]
     Active Substance: TRIAMCINOLONE ACETONIDE
     Indication: Product used for unknown indication
     Dosage: 0.1 PERCENT, BID TO AFFECTED AREA EXTERNALLY
     Route: 061

REACTIONS (11)
  - Asthenia [Not Recovered/Not Resolved]
  - Myalgia [Not Recovered/Not Resolved]
  - Stress [Not Recovered/Not Resolved]
  - Anxiety [Not Recovered/Not Resolved]
  - Pain [Not Recovered/Not Resolved]
  - Hypophosphataemia [Not Recovered/Not Resolved]
  - Palpitations [Recovered/Resolved]
  - Arthralgia [Not Recovered/Not Resolved]
  - Anhedonia [Not Recovered/Not Resolved]
  - Emotional distress [Not Recovered/Not Resolved]
  - Product quality issue [Unknown]

NARRATIVE: CASE EVENT DATE: 20200823
